FAERS Safety Report 7768590-9 (Version None)
Quarter: 2011Q3

REPORT INFORMATION
  Report Type: 
  Country: None (occurrence: None)
  Receive Date: 20110922
  Receipt Date: 20110920
  Transmission Date: 20111222
  Serious: Yes (Other)
  Sender: FDA-Public Use
  Company Number: US-ROXANE LABORATORIES, INC.-2011-RO-01322RO

PATIENT
  Age: 31 Year
  Sex: Female

DRUGS (2)
  1. METHOTREXATE [Suspect]
     Indication: ABORTION INDUCED
     Route: 030
  2. MISOPROSTOL [Suspect]
     Indication: ABORTION INDUCED
     Route: 067

REACTIONS (3)
  - HIV TEST POSITIVE [None]
  - INDUCED ABORTION FAILED [None]
  - PREMATURE LABOUR [None]
